FAERS Safety Report 4760360-9 (Version None)
Quarter: 2005Q3

REPORT INFORMATION
  Report Type: 
  Country: None (occurrence: None)
  Receive Date: 20050826
  Receipt Date: 20050516
  Transmission Date: 20060218
  Serious: No
  Sender: FDA-Public Use
  Company Number: 2005US002516

PATIENT
  Age: 22 Year
  Sex: Male
  Weight: 140.6 kg

DRUGS (11)
  1. ALOXI [Suspect]
     Indication: PROPHYLAXIS OF NAUSEA AND VOMITING
     Dosage: 0.25 MG, SINGLE, IV BOLUS
     Route: 040
     Dates: start: 20050512, end: 20050512
  2. DEXAMETHASONE [Concomitant]
  3. EMEND [Concomitant]
  4. ADRIAMYCIN PFS [Concomitant]
  5. BLEOMYCIN [Concomitant]
  6. VINBLASTINE (VINBLASTINE) [Concomitant]
  7. DTIC (CARBAZAPINE) [Concomitant]
  8. ZOLOFT [Concomitant]
  9. XANAX [Concomitant]
  10. ADVAIR (SALMETEROL XINAFOATE, FLUTICASONE PROPIONATE) [Concomitant]
  11. NEXIUM [Concomitant]

REACTIONS (2)
  - DRUG INEFFECTIVE [None]
  - VOMITING [None]
